FAERS Safety Report 11128047 (Version 1)
Quarter: 2015Q2

REPORT INFORMATION
  Report Type: Spontaneous
  Country: US (occurrence: None)
  Receive Date: 20150520
  Receipt Date: 20150520
  Transmission Date: 20150821
  Serious: No
  Sender: FDA-Public Use
  Company Number: None

PATIENT
  Age: 60 Year
  Sex: Male
  Weight: 72.58 kg

DRUGS (5)
  1. ANORO ELLIPTA [Suspect]
     Active Substance: UMECLIDINIUM BROMIDE\VILANTEROL TRIFENATATE
     Indication: CHRONIC OBSTRUCTIVE PULMONARY DISEASE
     Dosage: 1PUFF RESPIRATORY
     Route: 055
     Dates: start: 20150507, end: 20150509
  2. SIMVASTATIN. [Concomitant]
     Active Substance: SIMVASTATIN
  3. FLUTICASONE NASAL SPRAY [Concomitant]
     Active Substance: FLUTICASONE\FLUTICASONE PROPIONATE
  4. ASPIRIN. [Concomitant]
     Active Substance: ASPIRIN
  5. PROVENTIL [Concomitant]
     Active Substance: ALBUTEROL

REACTIONS (8)
  - Rash [None]
  - Rash papular [None]
  - Peripheral swelling [None]
  - Dyspnoea [None]
  - Chest pain [None]
  - Swelling face [None]
  - Skin exfoliation [None]
  - Oropharyngeal pain [None]

NARRATIVE: CASE EVENT DATE: 20150511
